FAERS Safety Report 6885232-5 (Version None)
Quarter: 2010Q3

REPORT INFORMATION
  Report Type: 
  Country: None (occurrence: None)
  Receive Date: 20100729
  Receipt Date: 20080107
  Transmission Date: 20110219
  Serious: No
  Sender: FDA-Public Use
  Company Number: US-PFIZER INC-2008000585

PATIENT
  Sex: Male
  Weight: 90.9 kg

DRUGS (7)
  1. CELEBREX [Suspect]
     Indication: MUSCULOSKELETAL PAIN
     Dates: start: 20071101, end: 20071201
  2. LIPITOR [Concomitant]
  3. GABAPENTIN [Concomitant]
  4. NIASPAN [Concomitant]
  5. MULTI-VITAMINS [Concomitant]
  6. ASCORBIC ACID [Concomitant]
  7. ACETYLSALICYLIC ACID SRT [Concomitant]

REACTIONS (1)
  - DRUG INEFFECTIVE [None]
